FAERS Safety Report 22629110 (Version 1)
Quarter: 2023Q2

REPORT INFORMATION
  Report Type: Spontaneous
  Country: OM (occurrence: OM)
  Receive Date: 20230622
  Receipt Date: 20230622
  Transmission Date: 20230721
  Serious: Yes (Hospitalization, Other)
  Sender: FDA-Public Use
  Company Number: OM-ORCHIDPHARMA-2023ORC00007

PATIENT
  Age: 3 Year
  Sex: Female

DRUGS (2)
  1. CEFDINIR [Suspect]
     Active Substance: CEFDINIR
     Indication: Oropharyngeal pain
     Dosage: 15 MG/KG/DOSE EVERY 12 HOURS
  2. IRON [Suspect]
     Active Substance: IRON
     Indication: Decreased appetite

REACTIONS (2)
  - Haematochezia [Unknown]
  - Drug interaction [Unknown]
